FAERS Safety Report 18342992 (Version 2)
Quarter: 2020Q4

REPORT INFORMATION
  Report Type: Spontaneous
  Country: US (occurrence: US)
  Receive Date: 20201005
  Receipt Date: 20201127
  Transmission Date: 20210113
  Serious: No
  Sender: FDA-Public Use
  Company Number: US-SA-2020SA271850

PATIENT

DRUGS (2)
  1. DUPIXENT [Suspect]
     Active Substance: DUPILUMAB
     Indication: DERMATITIS ATOPIC
     Dosage: 300 MG, QOW
     Route: 058
  2. DOXEPIN [Suspect]
     Active Substance: DOXEPIN
     Indication: PRURITUS
     Dosage: UNK UNK, HS
     Route: 048

REACTIONS (9)
  - Drug ineffective [Unknown]
  - Injection site pain [Unknown]
  - Injection site mass [Recovered/Resolved]
  - Stress [Unknown]
  - Somnolence [Unknown]
  - Pruritus [Unknown]
  - Ill-defined disorder [Unknown]
  - Skin disorder [Unknown]
  - Eczema [Unknown]
